FAERS Safety Report 14228398 (Version 1)
Quarter: 2017Q4

REPORT INFORMATION
  Report Type: Spontaneous
  Country: US (occurrence: US)
  Receive Date: 20171127
  Receipt Date: 20171127
  Transmission Date: 20180321
  Serious: No
  Sender: FDA-Public Use
  Company Number: US-B.I. PHARMACEUTICALS,INC./RIDGEFIELD-2017-BI-062937

PATIENT
  Age: 48 Year
  Sex: Female

DRUGS (4)
  1. HYDROXYZINE [Suspect]
     Active Substance: HYDROXYZINE HYDROCHLORIDE
     Indication: PRURITUS
     Route: 065
  2. MOBIC [Suspect]
     Active Substance: MELOXICAM
     Indication: PAIN
     Route: 065
  3. HUMIRA [Suspect]
     Active Substance: ADALIMUMAB
     Route: 058
  4. HUMIRA [Suspect]
     Active Substance: ADALIMUMAB
     Indication: PSORIATIC ARTHROPATHY
     Route: 058
     Dates: start: 20160324, end: 201612

REACTIONS (15)
  - Back pain [Unknown]
  - Injection site pain [Not Recovered/Not Resolved]
  - Drug dose omission [Unknown]
  - Rash papular [Unknown]
  - Pain [Unknown]
  - Musculoskeletal pain [Unknown]
  - Hypersensitivity [Unknown]
  - Sedation [Unknown]
  - Joint swelling [Unknown]
  - Sinusitis [Not Recovered/Not Resolved]
  - Erythema [Unknown]
  - Pruritus [Recovered/Resolved]
  - Joint stiffness [Unknown]
  - Arthralgia [Unknown]
  - Pruritus [Recovered/Resolved]

NARRATIVE: CASE EVENT DATE: 201612
